FAERS Safety Report 16040760 (Version 4)
Quarter: 2019Q2

REPORT INFORMATION
  Report Type: Spontaneous
  Country: US (occurrence: US)
  Receive Date: 20190306
  Receipt Date: 20190426
  Transmission Date: 20190711
  Serious: No
  Sender: FDA-Public Use
  Company Number: US-GLAXOSMITHKLINE-US2019039228

PATIENT
  Sex: Female

DRUGS (1)
  1. BENLYSTA [Suspect]
     Active Substance: BELIMUMAB
     Indication: PRODUCT USED FOR UNKNOWN INDICATION
     Dosage: 200 MG/ML, UNK
     Route: 058
     Dates: start: 201811

REACTIONS (5)
  - Injection site haemorrhage [Unknown]
  - Anxiety [Unknown]
  - Device malfunction [Unknown]
  - Product dose omission [Unknown]
  - Contusion [Unknown]
